FAERS Safety Report 22133144 (Version 2)
Quarter: 2023Q2

REPORT INFORMATION
  Report Type: Report from Study
  Country: CA (occurrence: CA)
  Receive Date: 20230324
  Receipt Date: 20230519
  Transmission Date: 20230721
  Serious: Yes (Hospitalization, Other)
  Sender: FDA-Public Use
  Company Number: CA-KOREA IPSEN Pharma-2021-14664

PATIENT
  Age: 65 Year
  Sex: Female

DRUGS (6)
  1. LANREOTIDE ACETATE [Suspect]
     Active Substance: LANREOTIDE ACETATE
     Indication: Neuroendocrine tumour
     Route: 058
     Dates: start: 20210419
  2. LANREOTIDE ACETATE [Suspect]
     Active Substance: LANREOTIDE ACETATE
     Route: 058
     Dates: start: 20210419
  3. UNSPECIFIED INGREDIENT [Concomitant]
     Active Substance: UNSPECIFIED INGREDIENT
  4. CODEINE [Concomitant]
     Active Substance: CODEINE
  5. METHIMAZOLE [Concomitant]
     Active Substance: METHIMAZOLE
  6. PROPRANOLOL [Concomitant]
     Active Substance: PROPRANOLOL HYDROCHLORIDE

REACTIONS (11)
  - Tumour excision [Unknown]
  - Hepatectomy [Unknown]
  - Surgery [Unknown]
  - Biopsy [Unknown]
  - Hernia repair [Unknown]
  - Neoplasm malignant [Unknown]
  - Intestinal obstruction [Unknown]
  - Heart rate increased [Unknown]
  - Product dose omission issue [Unknown]
  - SARS-CoV-2 test positive [Unknown]
  - Off label use [Unknown]

NARRATIVE: CASE EVENT DATE: 20210101
